FAERS Safety Report 18259577 (Version 3)
Quarter: 2020Q4

REPORT INFORMATION
  Report Type: Spontaneous
  Country: IT (occurrence: IT)
  Receive Date: 20200911
  Receipt Date: 20201014
  Transmission Date: 20210113
  Serious: Yes (Hospitalization)
  Sender: FDA-Public Use
  Company Number: IT-BAXTER-2020BAX018630

PATIENT
  Age: 52 Year
  Sex: Female
  Weight: 53 kg

DRUGS (4)
  1. ACQUA PER PREPARAZIONI INIETTABILI BAXTER [Suspect]
     Active Substance: WATER
     Indication: MEDICATION DILUTION
     Dosage: FIRST AND SECOND CYCLES
     Route: 042
  2. REMSIMA [Suspect]
     Active Substance: INFLIXIMAB
     Dosage: THIRD CYCLE;100MG
     Route: 042
     Dates: start: 20200710
  3. ACQUA PER PREPARAZIONI INIETTABILI BAXTER [Suspect]
     Active Substance: WATER
     Dosage: THIRD CYCLE
     Route: 042
     Dates: start: 20200710
  4. REMSIMA [Suspect]
     Active Substance: INFLIXIMAB
     Indication: COLITIS ULCERATIVE
     Dosage: 100MG;FIRST AND SECOND CYCLE
     Route: 042

REACTIONS (2)
  - Interstitial lung disease [Not Recovered/Not Resolved]
  - Respiratory failure [Not Recovered/Not Resolved]

NARRATIVE: CASE EVENT DATE: 20200714
